FAERS Safety Report 16869814 (Version 1)
Quarter: 2019Q3

REPORT INFORMATION
  Report Type: Spontaneous
  Country: CA (occurrence: CA)
  Receive Date: 20190930
  Receipt Date: 20190930
  Transmission Date: 20191005
  Serious: Yes (Other)
  Sender: FDA-Public Use
  Company Number: CA-TEVA-2019-CA-1114542

PATIENT
  Age: 38 Year
  Sex: Male

DRUGS (1)
  1. HYDROMORPHONE [Suspect]
     Active Substance: HYDROMORPHONE
     Indication: DRUG ABUSE
     Route: 065

REACTIONS (3)
  - Drug diversion [Unknown]
  - Drug abuse [Unknown]
  - Drug dependence [Unknown]
